FAERS Safety Report 8770989 (Version 1)
Quarter: 2012Q4

REPORT INFORMATION
  Report Type: 
  Country: US (occurrence: US)
  Receive Date: 20120906
  Receipt Date: 20120906
  Transmission Date: 20130627
  Serious: Yes (Hospitalization)
  Sender: FDA-Public Use
  Company Number: US-US-EMD SERONO, INC.-7154266

PATIENT
  Age: 31 Year
  Sex: Female

DRUGS (3)
  1. REBIF [Suspect]
     Indication: MULTIPLE SCLEROSIS
     Route: 058
     Dates: start: 201207
  2. REBIF [Suspect]
     Route: 058
     Dates: end: 20120808
  3. XANAX [Concomitant]
     Indication: ANXIETY

REACTIONS (4)
  - Cerebrovascular accident [Unknown]
  - Heart rate increased [Unknown]
  - Dyspnoea [Unknown]
  - Multiple sclerosis relapse [Unknown]
